FAERS Safety Report 15251713 (Version 2)
Quarter: 2018Q3

REPORT INFORMATION
  Report Type: Other
  Country: US (occurrence: US)
  Receive Date: 20180807
  Receipt Date: 20180808
  Transmission Date: 20181010
  Serious: Yes (Hospitalization)
  Sender: FDA-Public Use
  Company Number: DE-B. BRAUN MEDICAL INC.-2053400

PATIENT
  Age: 31 Year
  Sex: Male

DRUGS (1)
  1. SODIUM CHLORIDE INJECTIONS USP 0264?7800?00 0264?7800?10 [Suspect]
     Active Substance: SODIUM CHLORIDE

REACTIONS (6)
  - Pupils unequal [None]
  - Facial paralysis [None]
  - Wrist deformity [None]
  - Brain oedema [None]
  - Foot deformity [None]
  - Muscular weakness [None]
